FAERS Safety Report 22611053 (Version 1)
Quarter: 2023Q2

REPORT INFORMATION
  Report Type: Spontaneous
  Country: JP (occurrence: JP)
  Receive Date: 20230616
  Receipt Date: 20230616
  Transmission Date: 20230721
  Serious: Yes (Death, Other)
  Sender: FDA-Public Use
  Company Number: JP-TAKEDA-2023TJP007756

PATIENT
  Age: 86 Year
  Sex: Male

DRUGS (1)
  1. ADCETRIS [Suspect]
     Active Substance: BRENTUXIMAB VEDOTIN
     Indication: Angioimmunoblastic T-cell lymphoma recurrent
     Dosage: UNK
     Route: 042
     Dates: start: 20230401

REACTIONS (1)
  - Death [Fatal]

NARRATIVE: CASE EVENT DATE: 20230531
